FAERS Safety Report 10612288 (Version 2)
Quarter: 2014Q4

REPORT INFORMATION
  Report Type: Spontaneous
  Country: JP (occurrence: JP)
  Receive Date: 20141127
  Receipt Date: 20141127
  Transmission Date: 20150529
  Serious: Yes (Death, Other)
  Sender: FDA-Public Use
  Company Number: JP-BRISTOL-MYERS SQUIBB COMPANY-21547310

PATIENT
  Age: 69 Year
  Sex: Male
  Weight: 63.2 kg

DRUGS (5)
  1. ELPLAT [Suspect]
     Active Substance: OXALIPLATIN
     Indication: COLON CANCER
     Dosage: 16OCT2014
     Route: 041
  2. FOLINIC ACID [Concomitant]
     Active Substance: LEUCOVORIN
  3. ISOVORIN [Concomitant]
     Active Substance: LEUCOVORIN CALCIUM
  4. 5-FU [Concomitant]
     Active Substance: FLUOROURACIL
  5. ERBITUX [Suspect]
     Active Substance: CETUXIMAB
     Indication: COLON CANCER
     Dosage: INTER:11SEP2014;RESTARTED:16OCT2014?INTER: 16-OCT-2014
     Route: 041
     Dates: end: 20141016

REACTIONS (3)
  - Interstitial lung disease [Fatal]
  - Paronychia [Unknown]
  - Disseminated intravascular coagulation [Unknown]

NARRATIVE: CASE EVENT DATE: 20141016
